FAERS Safety Report 20609988 (Version 1)
Quarter: 2022Q1

REPORT INFORMATION
  Report Type: Spontaneous
  Country: US (occurrence: None)
  Receive Date: 20220318
  Receipt Date: 20220318
  Transmission Date: 20220423
  Serious: No
  Sender: FDA-Public Use
  Company Number: 2022A103673

PATIENT
  Sex: Female
  Weight: 65.3 kg

DRUGS (3)
  1. FASENRA [Suspect]
     Active Substance: BENRALIZUMAB
     Indication: Asthma
     Dosage: 30MG/ML EVERY EIGHT WEEKS
     Route: 058
     Dates: start: 202001
  2. CODEINE SULFATE [Concomitant]
     Active Substance: CODEINE SULFATE
     Dosage: 30.0MG UNKNOWN
     Route: 065
  3. ETHYL ALCOHOL [Concomitant]
     Active Substance: ALCOHOL
     Route: 065

REACTIONS (2)
  - Asthma [Unknown]
  - Feeling abnormal [Unknown]
